FAERS Safety Report 4559534-1 (Version None)
Quarter: 2005Q1

REPORT INFORMATION
  Report Type: 
  Country: None (occurrence: None)
  Receive Date: 20050124
  Receipt Date: 20050120
  Transmission Date: 20050727
  Serious: Yes (Hospitalization, Other)
  Sender: FDA-Public Use
  Company Number: CA-GLAXOSMITHKLINE-A0541623A

PATIENT
  Age: 61 Year
  Sex: Male

DRUGS (5)
  1. ALKERAN [Suspect]
     Indication: DRUG USE FOR UNKNOWN INDICATION
     Route: 042
     Dates: start: 20050118
  2. DECADRON [Concomitant]
  3. KYTRIL [Concomitant]
  4. ZANTAC [Concomitant]
     Route: 048
  5. ATIVAN [Concomitant]

REACTIONS (3)
  - BLOOD CREATININE INCREASED [None]
  - NO REACTION ON PREVIOUS EXPOSURE TO DRUG [None]
  - RENAL FAILURE [None]
